FAERS Safety Report 10658150 (Version 1)
Quarter: 2014Q4

REPORT INFORMATION
  Report Type: Spontaneous
  Country: US (occurrence: None)
  Receive Date: 20141205
  Receipt Date: 20141205
  Transmission Date: 20150529
  Serious: Yes (Other)
  Sender: FDA-Public Use
  Company Number: USA-2014110411

PATIENT
  Age: 64 Year
  Sex: Male
  Weight: 73.03 kg

DRUGS (5)
  1. CARAFATE (SUCRALFATE) (UNKNOWN) [Concomitant]
  2. DEXAMETHASONE (DEXAMETHASONE) (UNKNOWN)? [Concomitant]
  3. POMALYST [Suspect]
     Active Substance: POMALIDOMIDE
     Indication: PLASMA CELL MYELOMA
     Dosage: 4 MG,  21 IN 28 D,  PO
     Route: 048
     Dates: start: 201403
  4. COLACE (DOCUSATE SODIUM) (UNKNOWN) [Concomitant]
  5. PRILOSEC (OMEPRAZOLE) (UNKNOWN) [Concomitant]

REACTIONS (1)
  - Oedema peripheral [None]

NARRATIVE: CASE EVENT DATE: 201410
